FAERS Safety Report 4283764-X (Version None)
Quarter: 2004Q1

REPORT INFORMATION
  Report Type: 
  Country: None (occurrence: None)
  Receive Date: 20040130
  Receipt Date: 20040130
  Transmission Date: 20041129
  Serious: Yes (Hospitalization)
  Sender: FDA-Public Use
  Company Number: None

PATIENT
  Age: 66 Year
  Sex: Male
  Weight: 98 kg

DRUGS (3)
  1. LASIX [Suspect]
     Indication: FLUID OVERLOAD
     Dosage: 40 MG BID ORAL
     Route: 048
     Dates: start: 20031104, end: 20031105
  2. LASIX [Suspect]
     Indication: HYPERTENSION
     Dosage: 40 MG BID ORAL
     Route: 048
     Dates: start: 20031104, end: 20031105
  3. IMDUR [Suspect]
     Indication: HYPERTENSION
     Dosage: 90 MG QD ORAL
     Route: 048
     Dates: start: 20031104, end: 20031105

REACTIONS (2)
  - DEHYDRATION [None]
  - HYPERTENSION [None]
